FAERS Safety Report 10441332 (Version 1)
Quarter: 2014Q3

REPORT INFORMATION
  Report Type: Spontaneous
  Country: AR (occurrence: AR)
  Receive Date: 20140909
  Receipt Date: 20140909
  Transmission Date: 20150326
  Serious: Yes (Life-Threatening)
  Sender: FDA-Public Use
  Company Number: PHHY2014AR115596

PATIENT
  Sex: Female

DRUGS (1)
  1. EXFORGE [Suspect]
     Active Substance: AMLODIPINE BESYLATE\VALSARTAN
     Indication: HYPERTENSION
     Dosage: 1 DF (160 MG, AS REPORTED) DAILY
     Route: 048
     Dates: end: 20140905

REACTIONS (5)
  - Malaise [Unknown]
  - Feeling abnormal [Unknown]
  - Drug intolerance [Unknown]
  - Chest discomfort [Recovered/Resolved]
  - Presyncope [Unknown]
